FAERS Safety Report 14679100 (Version 3)
Quarter: 2018Q2

REPORT INFORMATION
  Report Type: Spontaneous
  Country: TH (occurrence: TH)
  Receive Date: 20180326
  Receipt Date: 20180423
  Transmission Date: 20180711
  Serious: Yes (Other)
  Sender: FDA-Public Use
  Company Number: PHHY2018TH048104

PATIENT
  Sex: Female

DRUGS (4)
  1. SANDIMMUN NEORAL [Suspect]
     Active Substance: CYCLOSPORINE
     Dosage: 2 DF, BID
     Route: 065
     Dates: start: 20180316
  2. SANDIMMUN NEORAL [Suspect]
     Active Substance: CYCLOSPORINE
     Dosage: 1 DF, QD
     Route: 065
  3. SANDIMMUN NEORAL [Suspect]
     Active Substance: CYCLOSPORINE
     Indication: RHEUMATOID ARTHRITIS
     Dosage: 1 DF, QD
     Route: 065
  4. SANDIMMUN NEORAL [Suspect]
     Active Substance: CYCLOSPORINE
     Dosage: 1 DF, QD
     Route: 065

REACTIONS (6)
  - Red blood cell sedimentation rate increased [Unknown]
  - Alopecia [Unknown]
  - Rash papular [Unknown]
  - Pruritus [Unknown]
  - Rash erythematous [Unknown]
  - Rash [Recovered/Resolved]

NARRATIVE: CASE EVENT DATE: 20180316
